FAERS Safety Report 9784051 (Version 3)
Quarter: 2014Q1

REPORT INFORMATION
  Report Type: Spontaneous
  Country: US (occurrence: US)
  Receive Date: 20131226
  Receipt Date: 20140214
  Transmission Date: 20141002
  Serious: Yes (Other)
  Sender: FDA-Public Use
  Company Number: US-PERRIGO-13US012412

PATIENT
  Age: 18 Year
  Sex: Female
  Weight: 54.42 kg

DRUGS (2)
  1. BENZOCAINE [Suspect]
     Indication: VULVOVAGINAL PRURITUS
     Dosage: SMALL AMOUNT, SINGLE
     Route: 061
     Dates: start: 20131201, end: 20131201
  2. BENZOCAINE [Suspect]
     Indication: VULVOVAGINAL BURNING SENSATION

REACTIONS (6)
  - Hypersensitivity [Recovering/Resolving]
  - Vulvovaginal swelling [Recovering/Resolving]
  - Vulvovaginal erythema [Recovering/Resolving]
  - Vulvovaginal burning sensation [Recovering/Resolving]
  - Vulvovaginal pain [Not Recovered/Not Resolved]
  - Gait disturbance [Recovering/Resolving]
